FAERS Safety Report 8524458-1 (Version None)
Quarter: 2012Q3

REPORT INFORMATION
  Report Type: 
  Country: None (occurrence: None)
  Receive Date: 20120720
  Receipt Date: 20120717
  Transmission Date: 20120928
  Serious: No
  Sender: FDA-Public Use
  Company Number: US-PFIZER INC-2012172489

PATIENT
  Sex: Female
  Weight: 81.633 kg

DRUGS (9)
  1. LISINOPRIL [Concomitant]
     Dosage: UNK
  2. NICOTROL [Suspect]
     Indication: SMOKING CESSATION THERAPY
     Dosage: UNK
     Dates: start: 20120714, end: 20120717
  3. SIMVASTATIN [Concomitant]
     Dosage: UNK
  4. CITALOPRAM [Concomitant]
     Dosage: UNK
  5. TRILEPTAL [Concomitant]
     Dosage: UNK
  6. QUETIAPINE [Concomitant]
     Dosage: UNK
  7. AMLODIPINE [Concomitant]
     Dosage: UNK
  8. ZETIA [Concomitant]
     Dosage: UNK
  9. HYDROCHLOROTHIAZIDE [Concomitant]
     Dosage: UNK

REACTIONS (6)
  - NAUSEA [None]
  - MALAISE [None]
  - INCORRECT ROUTE OF DRUG ADMINISTRATION [None]
  - POOR QUALITY DRUG ADMINISTERED [None]
  - DRUG INEFFECTIVE [None]
  - INCORRECT STORAGE OF DRUG [None]
